FAERS Safety Report 23703444 (Version 3)
Quarter: 2024Q4

REPORT INFORMATION
  Report Type: Spontaneous
  Country: ES (occurrence: ES)
  Receive Date: 20240403
  Receipt Date: 20241118
  Transmission Date: 20250115
  Serious: Yes (Other)
  Sender: MYLAN
  Company Number: ES-UCBSA-2024013441

PATIENT
  Age: 1 Month
  Sex: Male
  Weight: 5 kg

DRUGS (23)
  1. PHENYTOIN [Suspect]
     Active Substance: PHENYTOIN
     Indication: Epilepsy
     Dosage: UNK, Q8H (15)
     Route: 042
     Dates: start: 20220419, end: 20220615
  2. PHENYTOIN [Suspect]
     Active Substance: PHENYTOIN
     Indication: Gene mutation
  3. PHENYTOIN [Suspect]
     Active Substance: PHENYTOIN
     Indication: Epilepsy of infancy with migrating focal seizures
  4. PHENYTOIN [Suspect]
     Active Substance: PHENYTOIN
     Indication: Generalised tonic-clonic seizure
  5. PERAMPANEL [Suspect]
     Active Substance: PERAMPANEL
     Indication: Epilepsy of infancy with migrating focal seizures
     Dosage: 1 MILLIGRAM, QD
     Route: 065
     Dates: start: 20220419, end: 20220615
  6. PERAMPANEL [Suspect]
     Active Substance: PERAMPANEL
     Indication: Epilepsy
  7. PERAMPANEL [Suspect]
     Active Substance: PERAMPANEL
     Indication: Gene mutation
  8. PERAMPANEL [Suspect]
     Active Substance: PERAMPANEL
     Indication: Generalised tonic-clonic seizure
  9. KETAMINE [Suspect]
     Active Substance: KETAMINE
     Indication: Gene mutation
     Dosage: 2 MILLIGRAM/KILOGRAM
     Route: 042
     Dates: start: 20220419, end: 20220428
  10. KETAMINE [Suspect]
     Active Substance: KETAMINE
     Indication: Epilepsy of infancy with migrating focal seizures
  11. KETAMINE [Suspect]
     Active Substance: KETAMINE
     Indication: Epilepsy
  12. KETAMINE [Suspect]
     Active Substance: KETAMINE
     Indication: Generalised tonic-clonic seizure
  13. LACOSAMIDE [Suspect]
     Active Substance: LACOSAMIDE
     Indication: Epilepsy of infancy with migrating focal seizures
     Dosage: 10 MILLIGRAM, BID
     Route: 042
     Dates: start: 20220419, end: 20220615
  14. LACOSAMIDE [Suspect]
     Active Substance: LACOSAMIDE
     Indication: Epilepsy
  15. LACOSAMIDE [Suspect]
     Active Substance: LACOSAMIDE
     Indication: Gene mutation
  16. LACOSAMIDE [Suspect]
     Active Substance: LACOSAMIDE
     Indication: Generalised tonic-clonic seizure
  17. MIDAZOLAM [Suspect]
     Active Substance: MIDAZOLAM
     Indication: Epilepsy of infancy with migrating focal seizures
     Dosage: 0.5 MILLIGRAM/KILOGRAM
     Dates: start: 20220419, end: 20220428
  18. MIDAZOLAM [Suspect]
     Active Substance: MIDAZOLAM
     Indication: Epilepsy
  19. MIDAZOLAM [Suspect]
     Active Substance: MIDAZOLAM
     Indication: Gene mutation
  20. MIDAZOLAM [Suspect]
     Active Substance: MIDAZOLAM
     Indication: Generalised tonic-clonic seizure
  21. THIOPENTAL [Suspect]
     Active Substance: THIOPENTAL
     Indication: Generalised tonic-clonic seizure
     Dosage: 2 MILLIGRAM/KILOGRAM, QH
     Route: 042
     Dates: start: 20220428, end: 20220615
  22. PROPOFOL [Suspect]
     Active Substance: PROPOFOL
     Indication: Generalised tonic-clonic seizure
     Dosage: 2 MILLIGRAM/KILOGRAM, QH
     Route: 042
     Dates: start: 20220428, end: 20220615
  23. ACYCLOVIR [Concomitant]
     Active Substance: ACYCLOVIR
     Indication: Coxsackie virus test positive
     Dosage: 10 MILLIGRAM/KILOGRAM, Q8H, EVERY 8 HOURS
     Route: 042

REACTIONS (3)
  - Ileus paralytic [Unknown]
  - Multiple-drug resistance [Unknown]
  - Drug ineffective [Unknown]
